FAERS Safety Report 11915427 (Version 1)
Quarter: 2016Q1

REPORT INFORMATION
  Report Type: Spontaneous
  Country: US (occurrence: US)
  Receive Date: 20160114
  Receipt Date: 20160114
  Transmission Date: 20160526
  Serious: No
  Sender: FDA-Public Use
  Company Number: US-TEVA-615094USA

PATIENT
  Sex: Male
  Weight: 29.51 kg

DRUGS (2)
  1. METHOTREXATE [Suspect]
     Active Substance: METHOTREXATE
     Indication: INFLAMMATORY BOWEL DISEASE
     Route: 058
     Dates: start: 20151101
  2. HIVENTRA [Concomitant]
     Route: 058

REACTIONS (1)
  - Injection site pain [Unknown]
